FAERS Safety Report 4417599-1 (Version None)
Quarter: 2004Q2

REPORT INFORMATION
  Report Type: 
  Country: None (occurrence: None)
  Receive Date: 20040625
  Receipt Date: 20040506
  Transmission Date: 20050107
  Serious: No
  Sender: FDA-Public Use
  Company Number: 206381

PATIENT
  Age: 64 Year
  Sex: Male

DRUGS (15)
  1. AVASTIN [Suspect]
     Indication: COLORECTAL CANCER METASTATIC
     Dosage: 750 MG, Q2W, INTRAVENOUS
     Route: 042
     Dates: start: 20040406
  2. IRINOTECAN (IRINOTECAN HYDROCHLORIDE) [Concomitant]
  3. LEUCOVORIN CALCIUM [Concomitant]
  4. FLUOROURACIL [Concomitant]
  5. OXALIPLATIN [Concomitant]
  6. COUMADIN [Concomitant]
  7. TOPROL (METOPROLOL SUCCINATE) [Concomitant]
  8. ISOSORBIDE (ISOSORBIDE NOS) [Concomitant]
  9. PROSCAR [Concomitant]
  10. BUSPIRONE (BUSPIRONE HYDROCHLORIDE) [Concomitant]
  11. LISINOPRIL [Concomitant]
  12. METFORMIN HCL [Concomitant]
  13. FLOMAX [Concomitant]
  14. LIPITOR [Concomitant]
  15. LOMOTIL [Concomitant]

REACTIONS (1)
  - INTERNATIONAL NORMALISED RATIO INCREASED [None]
